FAERS Safety Report 19462785 (Version 2)
Quarter: 2021Q4

REPORT INFORMATION
  Report Type: Spontaneous
  Country: DE (occurrence: DE)
  Receive Date: 20210625
  Receipt Date: 20211124
  Transmission Date: 20220303
  Serious: Yes (Death, Other)
  Sender: FDA-Public Use
  Company Number: DE-AMGEN-DEUSP2021093629

PATIENT

DRUGS (7)
  1. PROLIA [Suspect]
     Active Substance: DENOSUMAB
     Indication: Osteoporosis
     Dosage: UNK UNK, Q6MO
     Route: 058
  2. XGEVA [Suspect]
     Active Substance: DENOSUMAB
     Indication: Metastases to bone
     Dosage: UNK UNK, QMO
     Route: 058
  3. XGEVA [Suspect]
     Active Substance: DENOSUMAB
     Indication: Plasma cell myeloma
  4. ZOLEDRONIC ACID [Concomitant]
     Active Substance: ZOLEDRONIC ACID
  5. IBANDRONIC ACID [Concomitant]
     Active Substance: IBANDRONIC ACID
  6. ALENDRONIC ACID [Concomitant]
     Active Substance: ALENDRONIC ACID
  7. RISEDRONIC ACID [Concomitant]
     Active Substance: RISEDRONIC ACID

REACTIONS (13)
  - Death [Fatal]
  - Squamous cell carcinoma [Unknown]
  - Osteonecrosis of jaw [Unknown]
  - Toothache [Unknown]
  - Mobility decreased [Unknown]
  - Gait inability [Unknown]
  - Decreased activity [Unknown]
  - Discomfort [Unknown]
  - Impaired self-care [Unknown]
  - Depression [Unknown]
  - Anxiety [Unknown]
  - Tooth infection [Unknown]
  - Pain [Unknown]
